FAERS Safety Report 21477470 (Version 5)
Quarter: 2022Q4

REPORT INFORMATION
  Report Type: Report from Study
  Country: MX (occurrence: MX)
  Receive Date: 20221019
  Receipt Date: 20221201
  Transmission Date: 20230112
  Serious: Yes (Other)
  Sender: FDA-Public Use
  Company Number: MX-UCBSA-2022059999

PATIENT
  Sex: Female

DRUGS (4)
  1. ROTIGOTINE [Suspect]
     Active Substance: ROTIGOTINE
     Indication: Parkinson^s disease
     Dosage: 12 MILLIGRAM, ONCE DAILY (QD) (ONE 8 MG PATCH TOGETHER WITH A 4 MG PATCH)
     Route: 062
     Dates: start: 2022, end: 202209
  2. ROTIGOTINE [Suspect]
     Active Substance: ROTIGOTINE
     Dosage: 16 MILLIGRAM, ONCE DAILY (QD) (TWO 8 MG PATCHES)
     Route: 062
     Dates: start: 202209
  3. RASAGILINE [Concomitant]
     Active Substance: RASAGILINE
     Indication: Parkinson^s disease
     Dosage: UNK
  4. VALSARTAN [Concomitant]
     Active Substance: VALSARTAN
     Indication: Hypertension
     Dosage: UNK

REACTIONS (6)
  - Parkinson^s disease [Not Recovered/Not Resolved]
  - Application site irritation [Not Recovered/Not Resolved]
  - Sleep-related eating disorder [Unknown]
  - Insomnia [Unknown]
  - Product adhesion issue [Unknown]
  - Intentional product use issue [Unknown]

NARRATIVE: CASE EVENT DATE: 20220101
